FAERS Safety Report 17605384 (Version 1)
Quarter: 2020Q1

REPORT INFORMATION
  Report Type: Spontaneous
  Country: US (occurrence: US)
  Receive Date: 20200331
  Receipt Date: 20200331
  Transmission Date: 20200409
  Serious: Yes (Other)
  Sender: FDA-Public Use
  Company Number: None

PATIENT
  Age: 41 Year
  Sex: Female
  Weight: 89.1 kg

DRUGS (1)
  1. MUCINEX DM [Suspect]
     Active Substance: DEXTROMETHORPHAN HYDROBROMIDE\GUAIFENESIN
     Indication: PULMONARY CONGESTION
     Dosage: ?          QUANTITY:1 TABLET(S);?
     Route: 048
     Dates: start: 20200328, end: 20200328

REACTIONS (7)
  - Dizziness [None]
  - Blood pressure decreased [None]
  - Blood pressure increased [None]
  - Paraesthesia [None]
  - Chest discomfort [None]
  - Dyspnoea [None]
  - Diarrhoea [None]

NARRATIVE: CASE EVENT DATE: 20200328
